FAERS Safety Report 9005378 (Version 2)
Quarter: 2013Q1

REPORT INFORMATION
  Report Type: Not Available
  Country: CN (occurrence: CN)
  Receive Date: 20130108
  Receipt Date: 20130226
  Transmission Date: 20140127
  Serious: Yes (Other)
  Sender: FDA-Public Use
  Company Number: CN-NAPPMUNDI-DEU-2012-0010202

PATIENT
  Age: 36 Year
  Sex: Female
  Weight: 50 kg

DRUGS (1)
  1. MS CONTIN TABLETS [Suspect]
     Indication: BACK PAIN
     Dosage: 30 MG, BID
     Route: 048
     Dates: start: 20090715, end: 20090715

REACTIONS (3)
  - Coma [Recovered/Resolved]
  - Tonic convulsion [Recovered/Resolved]
  - Respiratory depression [Recovered/Resolved]
